FAERS Safety Report 19932300 (Version 1)
Quarter: 2021Q4

REPORT INFORMATION
  Report Type: Spontaneous
  Country: DE (occurrence: DE)
  Receive Date: 20211008
  Receipt Date: 20211008
  Transmission Date: 20220304
  Serious: Yes (Other)
  Sender: FDA-Public Use
  Company Number: DE-NOVARTISPH-NVSC2021DE223467

PATIENT
  Age: 50 Year
  Sex: Male

DRUGS (2)
  1. OLANZAPINE [Suspect]
     Active Substance: OLANZAPINE
     Indication: Hypoacusis
     Dosage: 30 MG, QD (2-3 YEAR AGO)
     Route: 065
  2. ATOSIL [Concomitant]
     Indication: Product used for unknown indication
     Dosage: UNK
     Route: 065

REACTIONS (5)
  - Intentional self-injury [Unknown]
  - Blindness [Unknown]
  - Abdominal pain upper [Unknown]
  - Anxiety [Not Recovered/Not Resolved]
  - Product use in unapproved indication [Unknown]
